FAERS Safety Report 19759896 (Version 1)
Quarter: 2021Q3

REPORT INFORMATION
  Report Type: Spontaneous
  Country: GB (occurrence: GB)
  Receive Date: 20210830
  Receipt Date: 20210830
  Transmission Date: 20211014
  Serious: Yes (Hospitalization, Other)
  Sender: FDA-Public Use
  Company Number: GB-EPICPHARMA-GB-2021EPCLIT00931

PATIENT
  Age: 38 Year

DRUGS (6)
  1. AMLODIPINE BESYLATE. [Suspect]
     Active Substance: AMLODIPINE BESYLATE
     Indication: PRODUCT USED FOR UNKNOWN INDICATION
     Route: 065
     Dates: start: 202007
  2. INSULIN [Interacting]
     Active Substance: INSULIN NOS
     Route: 042
     Dates: start: 202007
  3. VASOPRESSIN [LYPRESSIN] [Interacting]
     Active Substance: LYPRESSIN
     Indication: HYPOTENSION
     Route: 065
     Dates: start: 202007
  4. INSULIN [Interacting]
     Active Substance: INSULIN NOS
     Indication: HYPOINSULINAEMIA
     Dosage: 1 U PER KG PER HOUR  FOR 24 H
     Route: 042
     Dates: start: 202007
  5. NORADRENALINE (NORPINEPHRINE) [Interacting]
     Active Substance: NOREPINEPHRINE
     Indication: HYPOTENSION
     Route: 065
     Dates: start: 202007
  6. ADRENALINE [EPINEPHRINE] [Interacting]
     Active Substance: EPINEPHRINE
     Indication: HYPOTENSION
     Route: 065
     Dates: start: 202007

REACTIONS (6)
  - Hypotension [Recovering/Resolving]
  - Hypoinsulinaemia [Recovering/Resolving]
  - Toxicity to various agents [Recovering/Resolving]
  - Intentional overdose [Recovering/Resolving]
  - Hypoglycaemia [Recovered/Resolved]
  - Unresponsive to stimuli [Recovering/Resolving]

NARRATIVE: CASE EVENT DATE: 202007
